FAERS Safety Report 4994898-6 (Version None)
Quarter: 2006Q2

REPORT INFORMATION
  Report Type: 
  Country: None (occurrence: None)
  Receive Date: 20060508
  Receipt Date: 20060426
  Transmission Date: 20061013
  Serious: Yes (Hospitalization)
  Sender: FDA-Public Use
  Company Number: FR-AVENTIS-200611581FR

PATIENT
  Age: 73 Year
  Sex: Male

DRUGS (4)
  1. LOVENOX [Suspect]
     Route: 058
     Dates: start: 20060217, end: 20060313
  2. FLECAINIDE ACETATE [Concomitant]
     Route: 048
     Dates: start: 20060217
  3. ATACAND [Concomitant]
     Dates: start: 20060217
  4. AMIODARONE HCL [Concomitant]
     Route: 048

REACTIONS (1)
  - SKIN NECROSIS [None]
